FAERS Safety Report 8029714-1 (Version None)
Quarter: 2012Q1

REPORT INFORMATION
  Report Type: 
  Country: None (occurrence: None)
  Receive Date: 20120104
  Receipt Date: 20111227
  Transmission Date: 20120608
  Serious: Yes (Death)
  Sender: FDA-Public Use
  Company Number: DSA_48646_2011

PATIENT
  Age: 57 Year
  Sex: Female

DRUGS (9)
  1. VENLAFAXINE [Suspect]
     Dosage: (DF ORAL)
     Route: 048
  2. METHOTREXATE [Suspect]
     Dosage: (DF ORAL)
     Route: 048
  3. DILTIAZEM HCL [Suspect]
     Dosage: (DF ORAL)
     Route: 048
  4. ANTIMALARIALS [Suspect]
     Dosage: (DF ORAL)
     Route: 048
  5. FLUOXETINE [Suspect]
     Dosage: (DF ORAL)
     Route: 048
  6. CLONAZEPAM [Suspect]
     Dosage: (DF ORAL)
     Route: 048
  7. GABAPENTIN [Suspect]
     Dosage: (DF ORAL)
     Route: 048
  8. BACLOFEN [Suspect]
     Dosage: (DF ORAL)
     Route: 048
  9. DIPHENHYDRAMINE HCL [Suspect]

REACTIONS (2)
  - INTENTIONAL DRUG MISUSE [None]
  - COMPLETED SUICIDE [None]
